FAERS Safety Report 4523221-6 (Version None)
Quarter: 2004Q4

REPORT INFORMATION
  Report Type: 
  Country: None (occurrence: None)
  Receive Date: 20041209
  Receipt Date: 20041209
  Transmission Date: 20050328
  Serious: Yes (Death)
  Sender: FDA-Public Use
  Company Number: None

PATIENT
  Age: 67 Year
  Sex: Female
  Weight: 85.2762 kg

DRUGS (1)
  1. INFLIXAMAB EVERY 2 MONTHS [Suspect]
     Indication: RHEUMATOID ARTHRITIS
     Dosage: EVERY 2 MONTHS
     Dates: start: 20010801, end: 20020401

REACTIONS (1)
  - MENINGITIS TUBERCULOUS [None]
